FAERS Safety Report 7786204-9 (Version None)
Quarter: 2011Q3

REPORT INFORMATION
  Report Type: 
  Country: None (occurrence: None)
  Receive Date: 20110929
  Receipt Date: 20110712
  Transmission Date: 20111222
  Serious: No
  Sender: FDA-Public Use
  Company Number: US-BAYER-2011-061408

PATIENT
  Sex: Female

DRUGS (3)
  1. ALEVE (CAPLET) [Suspect]
     Route: 048
  2. ALEVE (CAPLET) [Suspect]
  3. ACETAMINOPHEN [Concomitant]

REACTIONS (1)
  - DRUG INEFFECTIVE [None]
